FAERS Safety Report 6628629-0 (Version None)
Quarter: 2010Q1

REPORT INFORMATION
  Report Type: 
  Country: None (occurrence: None)
  Receive Date: 20100225
  Receipt Date: 20091221
  Transmission Date: 20100710
  Serious: Yes (Other)
  Sender: FDA-Public Use
  Company Number: 675911

PATIENT
  Sex: 0

DRUGS (2)
  1. ISOTRETINOIN [Suspect]
     Indication: ACNE
  2. ISOTRETINOIN [Suspect]
     Indication: SCAR

REACTIONS (2)
  - ABSCESS ORAL [None]
  - SUBCUTANEOUS ABSCESS [None]
